FAERS Safety Report 13680526 (Version 1)
Quarter: 2017Q2

REPORT INFORMATION
  Report Type: Report from Study
  Country: US (occurrence: US)
  Receive Date: 20170623
  Receipt Date: 20170623
  Transmission Date: 20170830
  Serious: Yes (Hospitalization)
  Sender: FDA-Public Use
  Company Number: US-ROCHE-1952355

PATIENT
  Age: 57 Year
  Sex: Female
  Weight: 62.4 kg

DRUGS (16)
  1. LYSINE [Concomitant]
     Active Substance: LYSINE
     Dosage: 2000 MG DAILY AT BEDTIME
     Route: 048
  2. ULTRAM [Concomitant]
     Active Substance: TRAMADOL HYDROCHLORIDE
     Dosage: EVERY 6 HOURS AS NEEDED FOR MODERATE PAIN OR SEVERE PAIN
     Route: 048
  3. ASPIRIN. [Concomitant]
     Active Substance: ASPIRIN
     Dosage: EC TABLET
     Route: 048
  4. OBINUTUZUMAB [Suspect]
     Active Substance: OBINUTUZUMAB
     Indication: B-CELL LYMPHOMA
     Route: 042
     Dates: start: 20170302, end: 20170311
  5. MEPERIDINE [Concomitant]
     Active Substance: MEPERIDINE
  6. LENALIDOMIDE [Suspect]
     Active Substance: LENALIDOMIDE
     Indication: B-CELL LYMPHOMA
     Dosage: 4 CAPSULES
     Route: 048
     Dates: start: 20170302, end: 20170311
  7. ZYRTEC [Concomitant]
     Active Substance: CETIRIZINE HYDROCHLORIDE
     Dosage: LAST DOSE ON 11/MAR/2017
     Route: 048
     Dates: start: 20170224
  8. ZANTAC [Concomitant]
     Active Substance: RANITIDINE HYDROCHLORIDE
     Dosage: 75 MG AT BEDTIME
     Route: 048
  9. CONCERTA [Concomitant]
     Active Substance: METHYLPHENIDATE HYDROCHLORIDE
     Route: 048
  10. ULTRAM [Concomitant]
     Active Substance: TRAMADOL HYDROCHLORIDE
     Route: 048
     Dates: start: 20170302
  11. ASPRIN [Concomitant]
     Active Substance: ASPIRIN
     Dosage: EC TABLET
     Route: 048
     Dates: start: 20170224
  12. LEVOFLOXACIN. [Concomitant]
     Active Substance: LEVOFLOXACIN
  13. S-ADENOSYLMETHIONINE SULFATE P-TOLUENESULFONATE [Concomitant]
     Active Substance: ADEMETIONINE SULFATE TOSILATE
     Dosage: 600 MG AS NEEDED?LAST DOSE RECEIVED ON 11/MAR/2017
     Route: 048
  14. VALTREX [Concomitant]
     Active Substance: VALACYCLOVIR HYDROCHLORIDE
     Route: 048
  15. GENTAMICIN. [Concomitant]
     Active Substance: GENTAMICIN
     Route: 065
  16. MORPHINE [Concomitant]
     Active Substance: MORPHINE

REACTIONS (3)
  - Pyrexia [Unknown]
  - Syncope [Unknown]
  - Rash [Unknown]

NARRATIVE: CASE EVENT DATE: 20170311
